FAERS Safety Report 6999715-0 (Version None)
Quarter: 2010Q3

REPORT INFORMATION
  Report Type: 
  Country: None (occurrence: None)
  Receive Date: 20100920
  Receipt Date: 20070706
  Transmission Date: 20110219
  Serious: Yes (Hospitalization)
  Sender: FDA-Public Use
  Company Number: US-ASTRAZENECA-2007UW04058

PATIENT
  Age: 10603 Day
  Sex: Female
  Weight: 86.2 kg

DRUGS (25)
  1. SEROQUEL [Suspect]
     Indication: BIPOLAR DISORDER
     Dosage: 300 MG - 600 MG
     Route: 048
     Dates: start: 20020101, end: 20070101
  2. SEROQUEL [Suspect]
     Indication: AFFECTIVE DISORDER
     Dosage: 300 MG - 600 MG
     Route: 048
     Dates: start: 20020101, end: 20070101
  3. SEROQUEL [Suspect]
     Dosage: STRENGTH 300MG.  DOSE 600MG TO 800MG.
     Route: 048
     Dates: start: 20030819
  4. SEROQUEL [Suspect]
     Dosage: STRENGTH 300MG.  DOSE 600MG TO 800MG.
     Route: 048
     Dates: start: 20030819
  5. FAMOTIDINE [Concomitant]
  6. ZITHROMAX [Concomitant]
  7. AMOXICILLIN [Concomitant]
  8. CARISOPRODOL [Concomitant]
  9. OXYCODONE HCL AND ACETAMINOPHEN [Concomitant]
     Dosage: STRENGTH 10-325, 10/650.
  10. TRAMADOL HCL [Concomitant]
  11. AXERT [Concomitant]
  12. PROMETHAZINE [Concomitant]
  13. AVANDIA [Concomitant]
  14. CEPHALEXIN [Concomitant]
  15. FLUCONAZOLE [Concomitant]
  16. TEGRETOL [Concomitant]
  17. KLONOPIN [Concomitant]
     Dosage: DOSE 1 MG TO 8 MG
  18. VICODIN [Concomitant]
     Indication: FIBROMYALGIA
     Dosage: STRENGTH 5/500, 7.5/750 AS NEEDED
  19. LIPITOR [Concomitant]
  20. ESTRADIOL [Concomitant]
  21. TOPAMAX [Concomitant]
  22. XANAX [Concomitant]
     Dosage: AS REQUIRED
  23. EFFEXOR [Concomitant]
  24. PROZAC [Concomitant]
  25. ZOLOFT [Concomitant]

REACTIONS (3)
  - DEPRESSION [None]
  - TYPE 2 DIABETES MELLITUS [None]
  - WEIGHT INCREASED [None]
